FAERS Safety Report 8490970-7 (Version None)
Quarter: 2012Q3

REPORT INFORMATION
  Report Type: 
  Country: None (occurrence: None)
  Receive Date: 20120706
  Receipt Date: 20120630
  Transmission Date: 20120928
  Serious: Yes (Other)
  Sender: FDA-Public Use
  Company Number: US-BAYER-2012-003797

PATIENT
  Age: 33 Year
  Sex: Female
  Weight: 62.812 kg

DRUGS (10)
  1. ACIDOLPH PRU [Concomitant]
     Indication: LAXATIVE SUPPORTIVE CARE
     Dosage: 1-2 TIMES DAILY
  2. YAZ [Suspect]
     Indication: MENSTRUATION IRREGULAR
  3. CRESTOR [Concomitant]
  4. DROSPIRENONE AND ETHINYL ESTRADIOL [Suspect]
     Indication: PREMENSTRUAL SYNDROME
     Dosage: UNK
     Dates: start: 20090401, end: 20100603
  5. CELEXA [Concomitant]
     Indication: IRRITABLE BOWEL SYNDROME
  6. ALLERGY MEDICATION [Concomitant]
     Indication: HYPERSENSITIVITY
     Dosage: UNK UNK, QD
  7. DICYCLOMINE [Concomitant]
     Indication: IRRITABLE BOWEL SYNDROME
  8. YAZ [Suspect]
     Indication: PREMENSTRUAL SYNDROME
     Dosage: UNK
     Dates: start: 20090101, end: 20090401
  9. DROSPIRENONE AND ETHINYL ESTRADIOL [Suspect]
     Indication: MENSTRUATION IRREGULAR
  10. FEXOFENADINE [Concomitant]
     Indication: SEASONAL ALLERGY

REACTIONS (12)
  - SPEECH DISORDER [None]
  - ANHEDONIA [None]
  - INJURY [None]
  - LACUNAR INFARCTION [None]
  - DYSURIA [None]
  - OEDEMA [None]
  - DYSPHAGIA [None]
  - MOOD ALTERED [None]
  - EMOTIONAL DISTRESS [None]
  - PAIN [None]
  - MOOD SWINGS [None]
  - URINARY RETENTION [None]
